FAERS Safety Report 18034955 (Version 1)
Quarter: 2020Q3

REPORT INFORMATION
  Report Type: Spontaneous
  Country: US (occurrence: US)
  Receive Date: 20200715
  Receipt Date: 20200715
  Transmission Date: 20201103
  Serious: No
  Sender: FDA-Public Use
  Company Number: None

PATIENT
  Sex: Female

DRUGS (1)
  1. BELVIQ XR [Suspect]
     Active Substance: LORCASERIN HYDROCHLORIDE

REACTIONS (5)
  - Withdrawal syndrome [None]
  - Tachyphrenia [None]
  - Violence-related symptom [None]
  - Mood swings [None]
  - Crying [None]

NARRATIVE: CASE EVENT DATE: 2020
